FAERS Safety Report 6984464-5 (Version None)
Quarter: 2010Q3

REPORT INFORMATION
  Report Type: 
  Country: None (occurrence: None)
  Receive Date: 20100915
  Receipt Date: 20100901
  Transmission Date: 20110219
  Serious: Yes (Hospitalization, Other)
  Sender: FDA-Public Use
  Company Number: US-ELI_LILLY_AND_COMPANY-US201007004339

PATIENT
  Sex: Female

DRUGS (26)
  1. FORTEO [Suspect]
     Indication: OSTEOPOROSIS
     Dosage: 20 UG, DAILY (1/D)
     Route: 058
     Dates: start: 20100528
  2. ASPIRIN [Concomitant]
     Dosage: 81 MG, DAILY (1/D)
     Route: 048
  3. CALTRATE + VITAMIN D [Concomitant]
     Dosage: UNK, DAILY (1/D)
     Route: 048
  4. MIACALCIN [Concomitant]
     Dosage: UNK, DAILY (1/D)
     Route: 055
  5. CELEXA [Concomitant]
     Dosage: 20 MG, EACH EVENING
     Route: 048
  6. COLACE [Concomitant]
     Dosage: 100 MG, 2/D
  7. LASIX [Concomitant]
     Dosage: 20 MG, 2/D
  8. ZESTRIL [Concomitant]
     Dosage: 5 MG, DAILY (1/D)
  9. CLARITIN [Concomitant]
     Dosage: 10 MG, DAILY (1/D)
  10. MAGNESIUM CITRATE [Concomitant]
     Dosage: UNK, DAILY (1/D)
     Route: 048
  11. K-TAB [Concomitant]
     Dosage: 20 MEQ, 4/D
     Route: 048
  12. SELENIUM [Concomitant]
     Dosage: 1 MG, EACH MORNING
     Route: 048
  13. ZOCOR [Concomitant]
     Dosage: 20 MG, EACH EVENING
     Route: 048
  14. DESYREL [Concomitant]
     Dosage: 50 MG, EACH EVENING
  15. VITAMIN A [Concomitant]
     Dosage: 10000 U, DAILY (1/D)
     Route: 048
  16. VITAMIN E [Concomitant]
     Dosage: 400 U, EACH EVENING
  17. TYLENOL (CAPLET) [Concomitant]
     Dosage: 650 MG, AS NEEDED
     Route: 048
  18. TYLENOL (CAPLET) [Concomitant]
     Indication: PYREXIA
     Dosage: 650 MG, EVERY 4 HRS
  19. XANAX [Concomitant]
     Indication: ANXIETY
     Dosage: 0.25 MG, EVERY 8 HRS
     Route: 048
  20. VALIUM [Concomitant]
     Indication: MUSCLE SPASMS
     Dosage: 2 MG, AS NEEDED
     Route: 048
  21. NORCO [Concomitant]
     Indication: PAIN
     Dosage: UNK D/F, AS NEEDED
     Route: 048
  22. MOM [Concomitant]
     Dosage: UNK, AS NEEDED
  23. ZOFRAN [Concomitant]
     Dosage: UNK, AS NEEDED
     Route: 042
  24. PERCOCET [Concomitant]
     Dosage: UNK D/F, AS NEEDED
  25. CRITIC-AID [Concomitant]
     Dosage: UNK, AS NEEDED
     Route: 061
  26. PREDNISONE [Concomitant]
     Dosage: 10 MG, DAILY (1/D)
     Dates: end: 20100728

REACTIONS (4)
  - ASTHENIA [None]
  - SPINAL COLUMN STENOSIS [None]
  - SPINAL COMPRESSION FRACTURE [None]
  - WALKING DISABILITY [None]
